FAERS Safety Report 6433082-6 (Version None)
Quarter: 2009Q4

REPORT INFORMATION
  Report Type: 
  Country: None (occurrence: None)
  Receive Date: 20091105
  Receipt Date: 20091026
  Transmission Date: 20100525
  Serious: Yes (Hospitalization)
  Sender: FDA-Public Use
  Company Number: 418639

PATIENT
  Age: 47 Year
  Sex: Male

DRUGS (6)
  1. (FAMOTIDINE) [Suspect]
     Indication: CHOLECYSTITIS ACUTE
  2. CEFOXITIN [Concomitant]
  3. FENTANYL-100 [Concomitant]
  4. MORPHINE [Concomitant]
  5. PROPOFOL [Concomitant]
  6. VECURONIUM BROMIDE [Concomitant]

REACTIONS (6)
  - BLOOD ALBUMIN DECREASED [None]
  - CHOLELITHIASIS [None]
  - HEPATITIS ACUTE [None]
  - IDIOSYNCRATIC DRUG REACTION [None]
  - PROTEIN TOTAL DECREASED [None]
  - RENAL FAILURE ACUTE [None]
